FAERS Safety Report 8608173-1 (Version None)
Quarter: 2012Q3

REPORT INFORMATION
  Report Type: 
  Country: None (occurrence: None)
  Receive Date: 20120821
  Receipt Date: 20120406
  Transmission Date: 20120928
  Serious: No
  Sender: FDA-Public Use
  Company Number: US-TEVA-332023USA

PATIENT
  Sex: Female

DRUGS (2)
  1. FLUCONAZOLE [Suspect]
     Indication: INFECTION
  2. FLUCONAZOLE [Suspect]

REACTIONS (6)
  - REGURGITATION [None]
  - RETCHING [None]
  - VOMITING [None]
  - RESPIRATORY TRACT IRRITATION [None]
  - DYSPEPSIA [None]
  - COUGH [None]
